FAERS Safety Report 6698997-2 (Version None)
Quarter: 2010Q2

REPORT INFORMATION
  Report Type: 
  Country: None (occurrence: None)
  Receive Date: 20100427
  Receipt Date: 20100414
  Transmission Date: 20101027
  Serious: Yes (Hospitalization)
  Sender: FDA-Public Use
  Company Number: GB-WATSON-2010-05465

PATIENT
  Age: 68 Year
  Sex: Male

DRUGS (2)
  1. SIMVASTATIN (WATSON LABORATORIES) [Suspect]
     Indication: HYPERCHOLESTEROLAEMIA
     Dosage: 40 MG, DAILY
     Route: 048
     Dates: start: 20020101, end: 20080101
  2. FUSIDIC ACID [Suspect]
     Indication: INFECTION
     Dosage: 500 MG, TID
     Route: 048
     Dates: start: 20081001, end: 20081001

REACTIONS (2)
  - DRUG INTERACTION [None]
  - RHABDOMYOLYSIS [None]
